FAERS Safety Report 19951669 (Version 2)
Quarter: 2023Q1

REPORT INFORMATION
  Report Type: Spontaneous
  Country: US (occurrence: US)
  Receive Date: 20211013
  Receipt Date: 20230102
  Transmission Date: 20230418
  Serious: Yes (Hospitalization, Disabling)
  Sender: FDA-Public Use
  Company Number: US-009507513-2110USA002167

PATIENT
  Sex: Female

DRUGS (4)
  1. PROVENTIL [Suspect]
     Active Substance: ALBUTEROL
     Indication: Asthma
     Dosage: 90 MCG/2 PUFFS BY MOUTH EVERY 4-6 HOURS
     Route: 055
     Dates: start: 1981
  2. PROVENTIL [Suspect]
     Active Substance: ALBUTEROL
     Dosage: 2-3 TIMES PER DAY
  3. ADVAIR HFA [Concomitant]
     Active Substance: FLUTICASONE PROPIONATE\SALMETEROL XINAFOATE
     Dosage: UNK
  4. BUDESONIDE;SALBUTAMOL [Concomitant]
     Dosage: UNK

REACTIONS (13)
  - Adverse event [Not Recovered/Not Resolved]
  - Illness [Unknown]
  - Dyspnoea [Not Recovered/Not Resolved]
  - Productive cough [Not Recovered/Not Resolved]
  - Asthma [Not Recovered/Not Resolved]
  - Back pain [Not Recovered/Not Resolved]
  - Chest pain [Not Recovered/Not Resolved]
  - Speech disorder [Unknown]
  - Device dependence [Unknown]
  - Fear of death [Unknown]
  - Product use issue [Unknown]
  - Product dose omission issue [Unknown]
  - Product availability issue [Unknown]

NARRATIVE: CASE EVENT DATE: 19810101
